FAERS Safety Report 7073950-8 (Version None)
Quarter: 2010Q4

REPORT INFORMATION
  Report Type: 
  Country: None (occurrence: None)
  Receive Date: 20101029
  Receipt Date: 20101019
  Transmission Date: 20110411
  Serious: Yes (Other)
  Sender: FDA-Public Use
  Company Number: PHHY2010US70127

PATIENT
  Sex: Female

DRUGS (3)
  1. ESTRADIOL [Suspect]
     Route: 062
  2. PROGESTERONE [Concomitant]
  3. TESTOSTERONE [Concomitant]

REACTIONS (2)
  - INTERSTITIAL GRANULOMATOUS DERMATITIS [None]
  - RASH PAPULAR [None]
